FAERS Safety Report 7642632-3 (Version None)
Quarter: 2011Q3

REPORT INFORMATION
  Report Type: 
  Country: None (occurrence: None)
  Receive Date: 20110728
  Receipt Date: 20110713
  Transmission Date: 20111222
  Serious: No
  Sender: FDA-Public Use
  Company Number: US-BAYER-2011-062202

PATIENT
  Sex: Female

DRUGS (2)
  1. BENADRYL [Suspect]
     Route: 048
  2. ALEVE (CAPLET) [Suspect]
     Route: 048

REACTIONS (3)
  - FEELING ABNORMAL [None]
  - FEELING DRUNK [None]
  - SOMNOLENCE [None]
